FAERS Safety Report 8830943 (Version 2)
Quarter: 2012Q4

REPORT INFORMATION
  Report Type: 
  Country: IT (occurrence: IT)
  Receive Date: 20121008
  Receipt Date: 20121102
  Transmission Date: 20130627
  Serious: Yes (Hospitalization)
  Sender: FDA-Public Use
  Company Number: IT-PFIZER INC-2012246040

PATIENT
  Age: 48 Year
  Sex: Female

DRUGS (6)
  1. CARBOPLATIN [Suspect]
     Indication: OVARIAN CANCER
     Dosage: 500 mg, total dose
     Route: 042
     Dates: start: 20120920, end: 20120920
  2. PACLITAXEL [Suspect]
     Indication: OVARIAN CANCER
     Dosage: 250 mg, total dose
     Route: 042
     Dates: start: 20120920, end: 20120920
  3. OMEPRAZOLE [Concomitant]
     Dosage: 20 mg, UNK
     Route: 048
  4. SOLDESAM [Concomitant]
     Dosage: 64 Gtt, UNK
     Route: 048
  5. MOVICOL [Concomitant]
     Dosage: 1 DF, UNK
  6. GRANISETRON [Concomitant]
     Dosage: 1 DF, UNK

REACTIONS (5)
  - Abdominal pain upper [Recovered/Resolved]
  - Flushing [Recovered/Resolved]
  - Nausea [Recovered/Resolved]
  - Tachycardia [Recovered/Resolved]
  - Hot flush [Recovered/Resolved]
